FAERS Safety Report 8513674-0 (Version None)
Quarter: 2012Q3

REPORT INFORMATION
  Report Type: 
  Country: None (occurrence: None)
  Receive Date: 20120717
  Receipt Date: 20120706
  Transmission Date: 20120928
  Serious: Yes (Other)
  Sender: FDA-Public Use
  Company Number: DE-BRISTOL-MYERS SQUIBB COMPANY-16752297

PATIENT
  Age: 52 Year
  Sex: Male

DRUGS (2)
  1. YERVOY [Suspect]
     Indication: METASTASES TO LIVER
     Dosage: 4 CYCLES FROM MARCH TO 08-JUN-12
     Dates: start: 20120301, end: 20120608
  2. YERVOY [Suspect]
     Indication: MALIGNANT MELANOMA
     Dosage: 4 CYCLES FROM MARCH TO 08-JUN-12
     Dates: start: 20120301, end: 20120608

REACTIONS (2)
  - HEPATOMEGALY [None]
  - METASTASIS [None]
